FAERS Safety Report 19459676 (Version 5)
Quarter: 2021Q3

REPORT INFORMATION
  Report Type: Report from Study
  Country: US (occurrence: US)
  Receive Date: 20210624
  Receipt Date: 20210925
  Transmission Date: 20211014
  Serious: Yes (Hospitalization, Other)
  Sender: FDA-Public Use
  Company Number: US-SHIRE-US201936637AA

PATIENT
  Age: 90 Year
  Sex: Female

DRUGS (2)
  1. HUMAN NORMAL IMMUNOGLOBULIN; LIQUID [Suspect]
     Active Substance: HUMAN IMMUNOGLOBULIN G
     Indication: PRIMARY IMMUNODEFICIENCY SYNDROME
     Dosage: UNK
     Route: 042
  2. HUMAN NORMAL IMMUNOGLOBULIN; LIQUID [Suspect]
     Active Substance: HUMAN IMMUNOGLOBULIN G
     Dosage: 20 GRAM, MONTHLY
     Route: 042

REACTIONS (26)
  - Barrett^s oesophagus [Unknown]
  - Respiratory tract infection [Unknown]
  - Vomiting [Unknown]
  - Chronic obstructive pulmonary disease [Unknown]
  - Sinusitis [Not Recovered/Not Resolved]
  - Exposure to SARS-CoV-2 [Unknown]
  - Malaise [Unknown]
  - Blood pressure increased [Unknown]
  - Atrial fibrillation [Not Recovered/Not Resolved]
  - Pneumonia [Not Recovered/Not Resolved]
  - Upper respiratory tract infection [Not Recovered/Not Resolved]
  - Illness [Unknown]
  - Insomnia [Unknown]
  - Blood pressure fluctuation [Unknown]
  - Haemorrhage [Unknown]
  - Ear pain [Unknown]
  - Nausea [Unknown]
  - Renal function test abnormal [Unknown]
  - Multimorbidity [Unknown]
  - Clostridium difficile infection [Unknown]
  - Asthma [Unknown]
  - Blood potassium increased [Unknown]
  - Renal disorder [Unknown]
  - Blood creatinine increased [Unknown]
  - Eye contusion [Unknown]
  - Bronchitis [Unknown]

NARRATIVE: CASE EVENT DATE: 201909
